FAERS Safety Report 18235758 (Version 2)
Quarter: 2020Q4

REPORT INFORMATION
  Report Type: Spontaneous
  Country: IT (occurrence: IT)
  Receive Date: 20200905
  Receipt Date: 20201008
  Transmission Date: 20210113
  Serious: Yes (Death)
  Sender: FDA-Public Use
  Company Number: IT-TEVA-2020-IT-1822946

PATIENT
  Age: 72 Year
  Sex: Male

DRUGS (8)
  1. CARDICOR [Concomitant]
     Active Substance: BISOPROLOL
     Dosage: 1.25 MILLIGRAM
     Route: 048
  2. ATORVASTATIN [Concomitant]
     Active Substance: ATORVASTATIN
     Dosage: 40 MILLIGRAM
     Route: 048
  3. EUTIROX [Concomitant]
     Active Substance: LEVOTHYROXINE SODIUM
     Dosage: 100 MICROGRAM
     Route: 048
  4. QUETIAPINE. [Suspect]
     Active Substance: QUETIAPINE
     Dosage: 25 MILLIGRAM
     Route: 048
  5. PANTORC [Concomitant]
     Active Substance: PANTOPRAZOLE SODIUM
     Dosage: 40 MILLIGRAM
     Route: 048
  6. FUROSEMIDE. [Concomitant]
     Active Substance: FUROSEMIDE
     Dosage: 20 MILLIGRAM
     Route: 042
     Dates: start: 20200727, end: 20200729
  7. TEXTAZO 4G + 0,5 G POLVERE PER SOLUZIONE PER INFUSIONE [Concomitant]
     Route: 042
     Dates: start: 20200728, end: 20200729
  8. LUVION [Concomitant]
     Dosage: 100 MILLIGRAM
     Route: 042
     Dates: start: 20200727, end: 20200729

REACTIONS (3)
  - Electrocardiogram QT prolonged [Fatal]
  - Bradycardia [Fatal]
  - Electrocardiogram QRS complex abnormal [Fatal]

NARRATIVE: CASE EVENT DATE: 20200728
